FAERS Safety Report 24344426 (Version 1)
Quarter: 2024Q3

REPORT INFORMATION
  Report Type: Spontaneous
  Country: AU (occurrence: AU)
  Receive Date: 20240920
  Receipt Date: 20240920
  Transmission Date: 20241017
  Serious: Yes (Death, Hospitalization, Other)
  Sender: SANDOZ
  Company Number: AU-RBHC-20-24-AUS-RB-0005605

PATIENT
  Age: 19 Month
  Sex: Male

DRUGS (3)
  1. IBUPROFEN [Suspect]
     Active Substance: IBUPROFEN
     Indication: Product used for unknown indication
     Dosage: UNK
     Route: 065
     Dates: start: 202112, end: 202112
  2. ONDANSETRON [Suspect]
     Active Substance: ONDANSETRON
     Indication: Nausea
     Dosage: UNK
     Route: 065
     Dates: start: 202112, end: 202112
  3. ACETAMINOPHEN [Suspect]
     Active Substance: ACETAMINOPHEN
     Indication: Product used for unknown indication
     Dosage: UNK
     Route: 065
     Dates: start: 202112, end: 202112

REACTIONS (5)
  - Dehydration [Fatal]
  - Brain death [Fatal]
  - Condition aggravated [Fatal]
  - Meningitis [Fatal]
  - Seizure [Fatal]

NARRATIVE: CASE EVENT DATE: 20211201
